FAERS Safety Report 7108608-X (Version None)
Quarter: 2010Q4

REPORT INFORMATION
  Report Type: 
  Country: None (occurrence: None)
  Receive Date: 20101115
  Receipt Date: 20101115
  Transmission Date: 20110411
  Serious: Yes (Other)
  Sender: FDA-Public Use
  Company Number: None

PATIENT
  Age: 27 Year
  Sex: Female
  Weight: 72.7 kg

DRUGS (1)
  1. METOCLOPRAMIDE [Suspect]
     Indication: LACTATION PUERPERAL INCREASED
     Dosage: 10 MG 3X/DAY ORAL
     Route: 048
     Dates: start: 20101028, end: 20101029

REACTIONS (5)
  - BRUXISM [None]
  - DYSPHAGIA [None]
  - DYSTONIA [None]
  - SPEECH DISORDER [None]
  - VISION BLURRED [None]
